FAERS Safety Report 7869693-0 (Version None)
Quarter: 2011Q4

REPORT INFORMATION
  Report Type: 
  Country: None (occurrence: None)
  Receive Date: 20111028
  Receipt Date: 20110106
  Transmission Date: 20120403
  Serious: No
  Sender: FDA-Public Use
  Company Number: US-AMGEN-TCS397997

PATIENT
  Age: 75 Year
  Sex: Male

DRUGS (20)
  1. ENBREL [Suspect]
     Indication: PSORIASIS
     Dosage: 50 MG, QWK
     Route: 058
     Dates: start: 20040103
  2. ALBUTEROL INHALER [Concomitant]
     Indication: ASTHMA
  3. FLUTICASONE PROPIONATE [Concomitant]
     Dosage: UNK UNK, UNK
  4. ATENOLOL [Concomitant]
     Dosage: 50 MG, QD
     Route: 048
  5. CLOBETASOL PROPIONATE [Concomitant]
     Indication: PSORIASIS
     Dosage: .05 %, UNK
     Route: 061
  6. ASPIRIN [Suspect]
  7. GLIMEPIRIDE [Concomitant]
     Indication: DIABETES MELLITUS
     Dosage: 2 MG, BID
     Route: 048
  8. BETAMETHASONE DIPROPIONATE [Concomitant]
     Dosage: UNK UNK, UNK
     Route: 061
  9. SODIUM CHLORIDE INJ [Concomitant]
     Dosage: 650 MG, BID
  10. OLMESARTAN MEDOXOMIL [Concomitant]
     Dosage: UNK UNK, QD
     Route: 048
  11. PROTOPIC [Concomitant]
     Indication: PSORIASIS
     Dosage: .03 %, UNK
     Route: 061
  12. ALLOPURINOL [Concomitant]
     Dosage: 300 MG, QD
     Route: 048
  13. ASPIRIN [Suspect]
     Dosage: 325 MG, QD
     Route: 048
  14. NIASPAN [Concomitant]
     Dosage: 750 MG, BID
     Route: 048
  15. FUROSEMIDE [Concomitant]
     Dosage: 40 MG, QD
     Route: 048
  16. FEXOFENADINE HCL [Concomitant]
     Dosage: 180 MG, QD
     Route: 048
  17. POTASSIUM CHLORIDE [Concomitant]
     Dosage: 20 MEQ, QD
     Route: 048
  18. FOLIC ACID [Concomitant]
     Indication: PSORIASIS
     Dosage: 1 MG, QD
     Route: 048
  19. MOMETASONE FUROATE [Concomitant]
     Indication: PSORIASIS
     Dosage: .1 %, BID
     Route: 061
  20. PRAVASTATIN SODIUM [Concomitant]
     Dosage: 40 MG, QD
     Route: 048

REACTIONS (6)
  - INJECTION SITE ERYTHEMA [None]
  - DUODENAL ULCER [None]
  - PSORIASIS [None]
  - GASTRIC ULCER [None]
  - INJECTION SITE PAPULE [None]
  - INJECTION SITE REACTION [None]
